FAERS Safety Report 9870842 (Version 1)
Quarter: 2014Q1

REPORT INFORMATION
  Report Type: Spontaneous
  Country: US (occurrence: US)
  Receive Date: 20140205
  Receipt Date: 20140205
  Transmission Date: 20141002
  Serious: Yes (Other)
  Sender: FDA-Public Use
  Company Number: US-ELI_LILLY_AND_COMPANY-US201401009077

PATIENT
  Sex: Male

DRUGS (3)
  1. EFFIENT [Suspect]
     Indication: STENT PLACEMENT
     Dosage: 10 MG, QD
     Route: 048
     Dates: start: 201004
  2. LISINOPRIL [Concomitant]
  3. CARVEDILOL [Concomitant]

REACTIONS (3)
  - Spinal column stenosis [Not Recovered/Not Resolved]
  - CSF volume increased [Not Recovered/Not Resolved]
  - Loss of consciousness [Unknown]
